FAERS Safety Report 9819320 (Version 1)
Quarter: 2013Q4

REPORT INFORMATION
  Report Type: Spontaneous
  Country: US (occurrence: None)
  Receive Date: 20131223
  Receipt Date: 20131223
  Transmission Date: 20140711
  Serious: Yes (Other)
  Sender: FDA-Public Use
  Company Number: 220854

PATIENT
  Sex: Male

DRUGS (1)
  1. PICATO GEL [Suspect]
     Indication: ACTINIC KERATOSIS
     Dosage: (FOR 2 DAYS), TOPICAL
     Route: 061
     Dates: start: 20130317, end: 20130318

REACTIONS (2)
  - Application site paraesthesia [None]
  - Product physical consistency issue [None]
